FAERS Safety Report 9335143 (Version 3)
Quarter: 2013Q2

REPORT INFORMATION
  Report Type: Spontaneous
  Country: US (occurrence: US)
  Receive Date: 20130606
  Receipt Date: 20130625
  Transmission Date: 20140414
  Serious: Yes (Hospitalization)
  Sender: FDA-Public Use
  Company Number: US-GLAXOSMITHKLINE-A1025781A

PATIENT
  Age: 41 Year
  Sex: Female
  Weight: 77.7 kg

DRUGS (11)
  1. ADVAIR [Suspect]
     Indication: PRODUCT USED FOR UNKNOWN INDICATION
     Route: 055
  2. SINGULAIR [Suspect]
     Indication: PRODUCT USED FOR UNKNOWN INDICATION
     Dosage: 10MG PER DAY
     Route: 048
  3. CICLESONIDE [Suspect]
     Indication: PRODUCT USED FOR UNKNOWN INDICATION
     Route: 045
     Dates: start: 201301, end: 20130503
  4. PREDNISONE [Concomitant]
     Dates: end: 201303
  5. FLORINEF [Concomitant]
     Dates: end: 201303
  6. CALCIUM + VITAMIN D [Concomitant]
  7. VIMPAT [Concomitant]
  8. CLARITIN [Concomitant]
  9. MULTIVITAMIN [Concomitant]
  10. POTASSIUM GLUCONATE [Concomitant]
  11. ZANTAC [Concomitant]

REACTIONS (10)
  - Sepsis [Unknown]
  - Urosepsis [Unknown]
  - Adrenal insufficiency [Unknown]
  - Septic shock [Unknown]
  - Hypotension [Recovered/Resolved]
  - Leukocytosis [Unknown]
  - Presyncope [Recovered/Resolved]
  - Infection [Unknown]
  - Tinnitus [Recovered/Resolved]
  - Nausea [Recovered/Resolved]
